FAERS Safety Report 4306776-6 (Version None)
Quarter: 2004Q1

REPORT INFORMATION
  Report Type: 
  Country: None (occurrence: None)
  Receive Date: 20040225
  Receipt Date: 20040209
  Transmission Date: 20041129
  Serious: Yes (Death, Hospitalization, Other)
  Sender: FDA-Public Use
  Company Number: USA040258731

PATIENT
  Age: 73 Year
  Sex: Female

DRUGS (1)
  1. GEMZAR [Suspect]
     Indication: LUNG NEOPLASM MALIGNANT
     Dosage: 1000 MG/M2
     Dates: start: 20031203, end: 20040114

REACTIONS (3)
  - DYSPNOEA [None]
  - HYPOXIA [None]
  - SCAN GALLIUM ABNORMAL [None]
